FAERS Safety Report 11572395 (Version 1)
Quarter: 2015Q3

REPORT INFORMATION
  Report Type: Spontaneous
  Country: US (occurrence: US)
  Receive Date: 20150916
  Receipt Date: 20150916
  Transmission Date: 20151125
  Serious: No
  Sender: FDA-Public Use
  Company Number: US-ELI_LILLY_AND_COMPANY-US200910003203

PATIENT
  Age: 56 Year
  Sex: Female

DRUGS (4)
  1. VITAMIN D [Concomitant]
     Active Substance: CHOLECALCIFEROL
     Dosage: 400 IU, UNK
  2. FORTEO [Suspect]
     Active Substance: TERIPARATIDE
     Dates: end: 200909
  3. FORTEO [Suspect]
     Active Substance: TERIPARATIDE
     Dosage: UNK, UNK
     Dates: start: 20091008
  4. FORTEO [Suspect]
     Active Substance: TERIPARATIDE
     Indication: OSTEOPOROSIS
     Dates: start: 200802

REACTIONS (12)
  - Muscle spasms [Recovered/Resolved]
  - Nasopharyngitis [Recovering/Resolving]
  - Muscle spasms [Recovered/Resolved]
  - Hypersensitivity [Recovering/Resolving]
  - Muscle spasms [Recovered/Resolved]
  - Tenderness [Recovering/Resolving]
  - Chest pain [Recovered/Resolved]
  - Rhinorrhoea [Recovering/Resolving]
  - Nephrolithiasis [Recovered/Resolved]
  - Nephrolithiasis [Recovered/Resolved]
  - Surgery [Recovered/Resolved]
  - Pain [Unknown]

NARRATIVE: CASE EVENT DATE: 200811
